FAERS Safety Report 17915908 (Version 1)
Quarter: 2020Q2

REPORT INFORMATION
  Report Type: Spontaneous
  Country: VI (occurrence: VI)
  Receive Date: 20200618
  Receipt Date: 20200618
  Transmission Date: 20200714
  Serious: No
  Sender: FDA-Public Use
  Company Number: None

PATIENT
  Age: 57 Year
  Sex: Female
  Weight: 58.5 kg

DRUGS (7)
  1. BIO-DENTITAL HRT [Concomitant]
  2. ZYRTEC [Concomitant]
     Active Substance: CETIRIZINE HYDROCHLORIDE
  3. OTEZLA [Suspect]
     Active Substance: APREMILAST
     Indication: PSORIATIC ARTHROPATHY
     Dosage: QUANTITY:1 TABLET(S);?
     Route: 048
     Dates: start: 20180630
  4. METROGEL [Concomitant]
     Active Substance: METRONIDAZOLE
  5. FISH OIL [Concomitant]
     Active Substance: FISH OIL
  6. SUPPRESANT ANTACID [Concomitant]
  7. SUDAFED COUGH [Concomitant]

REACTIONS (4)
  - Cough [None]
  - Gastrooesophageal reflux disease [None]
  - Ear congestion [None]
  - Gastrointestinal disorder [None]
